FAERS Safety Report 6217315-7 (Version None)
Quarter: 2009Q2

REPORT INFORMATION
  Report Type: 
  Country: None (occurrence: None)
  Receive Date: 20090604
  Receipt Date: 20090604
  Transmission Date: 20091009
  Serious: Yes (Hospitalization)
  Sender: FDA-Public Use
  Company Number: None

PATIENT
  Age: 51 Year
  Sex: Male
  Weight: 94.5 kg

DRUGS (1)
  1. SULFAMETHOXAZOLE AND TRIMETHOPRIM [Suspect]
     Indication: CELLULITIS
     Dates: start: 20090503, end: 20090506

REACTIONS (4)
  - DIARRHOEA [None]
  - HYPERKALAEMIA [None]
  - OSTEOMYELITIS [None]
  - RENAL FAILURE ACUTE [None]
